FAERS Safety Report 10033638 (Version 1)
Quarter: 2014Q1

REPORT INFORMATION
  Report Type: Spontaneous
  Country: US (occurrence: US)
  Receive Date: 20140325
  Receipt Date: 20140325
  Transmission Date: 20141002
  Serious: No
  Sender: FDA-Public Use
  Company Number: US-BIOGENIDEC-2014BI023531

PATIENT
  Sex: Female

DRUGS (4)
  1. TECFIDERA [Suspect]
     Indication: MULTIPLE SCLEROSIS
     Route: 048
     Dates: start: 201311
  2. RECLIPSEN [Concomitant]
  3. TUMS E-X [Concomitant]
  4. ZYRTEC-D [Concomitant]

REACTIONS (2)
  - Palpitations [Unknown]
  - Heart rate increased [Recovered/Resolved]
